FAERS Safety Report 11643080 (Version 1)
Quarter: 2015Q4

REPORT INFORMATION
  Report Type: Spontaneous
  Country: US (occurrence: US)
  Receive Date: 20151020
  Receipt Date: 20151020
  Transmission Date: 20160304
  Serious: No
  Sender: FDA-Public Use
  Company Number: US-BAYER-2015-446876

PATIENT
  Sex: Male

DRUGS (1)
  1. OXYTROL FOR WOMEN [Suspect]
     Active Substance: OXYBUTYNIN
     Dosage: UNK
     Dates: start: 2014

REACTIONS (2)
  - Product use issue [None]
  - Product use issue [None]

NARRATIVE: CASE EVENT DATE: 2014
